FAERS Safety Report 4976846-8 (Version None)
Quarter: 2006Q2

REPORT INFORMATION
  Report Type: 
  Country: None (occurrence: None)
  Receive Date: 20060418
  Receipt Date: 20060418
  Transmission Date: 20061013
  Serious: Yes (Other)
  Sender: FDA-Public Use
  Company Number: None

PATIENT
  Age: 82 Year
  Sex: Female

DRUGS (1)
  1. LEVAQUIN [Suspect]
     Dosage: 250 MG QOD PEG
     Dates: start: 20060401, end: 20060413

REACTIONS (2)
  - CONVULSION [None]
  - MYOCLONUS [None]
